FAERS Safety Report 11649648 (Version 2)
Quarter: 2016Q1

REPORT INFORMATION
  Report Type: Report from Study
  Country: US (occurrence: US)
  Receive Date: 20151021
  Receipt Date: 20160216
  Transmission Date: 20160525
  Serious: Yes (Hospitalization)
  Sender: FDA-Public Use
  Company Number: US-VERTEX PHARMACEUTICALS-2015-004270

PATIENT
  Age: 30 Year
  Sex: Female
  Weight: 38 kg

DRUGS (2)
  1. ORKAMBI [Suspect]
     Active Substance: IVACAFTOR\LUMACAFTOR
     Indication: CYSTIC FIBROSIS
     Dosage: 400/250MG, BID
     Route: 048
     Dates: start: 20150924, end: 20151007
  2. ORKAMBI [Suspect]
     Active Substance: IVACAFTOR\LUMACAFTOR
     Dosage: UNK
     Route: 048

REACTIONS (9)
  - Nasopharyngitis [Not Recovered/Not Resolved]
  - Nasal congestion [Recovering/Resolving]
  - Headache [Recovering/Resolving]
  - Rhinovirus infection [Recovered/Resolved]
  - Cough [Not Recovered/Not Resolved]
  - Oropharyngeal pain [Recovered/Resolved]
  - Rhinorrhoea [Recovering/Resolving]
  - Weight decreased [Not Recovered/Not Resolved]
  - Fatigue [Not Recovered/Not Resolved]

NARRATIVE: CASE EVENT DATE: 20150925
